FAERS Safety Report 19808556 (Version 2)
Quarter: 2022Q1

REPORT INFORMATION
  Report Type: Spontaneous
  Country: IN (occurrence: IN)
  Receive Date: 20210908
  Receipt Date: 20220126
  Transmission Date: 20220423
  Serious: Yes (Death, Other)
  Sender: FDA-Public Use
  Company Number: IN-PFIZER INC-202101145636

PATIENT
  Age: 48 Year
  Sex: Male

DRUGS (1)
  1. CRIZOTINIB [Suspect]
     Active Substance: CRIZOTINIB
     Indication: ALK gene rearrangement positive
     Dosage: 250 MG, 2X/DAY
     Route: 048
     Dates: start: 20161228, end: 20190416

REACTIONS (3)
  - Myocardial infarction [Fatal]
  - Second primary malignancy [Unknown]
  - Hepatic cancer [Unknown]
